FAERS Safety Report 15722720 (Version 3)
Quarter: 2019Q1

REPORT INFORMATION
  Report Type: Spontaneous
  Country: GB (occurrence: GB)
  Receive Date: 20181214
  Receipt Date: 20190118
  Transmission Date: 20190417
  Serious: Yes (Hospitalization)
  Sender: FDA-Public Use
  Company Number: GB-CELGENEUS-GBR-20181202270

PATIENT
  Age: 56 Year
  Sex: Female
  Weight: 59 kg

DRUGS (24)
  1. DARATUMUMAB [Concomitant]
     Active Substance: DARATUMUMAB
     Indication: PLASMA CELL MYELOMA
     Dosage: 990 MILLIGRAM
     Route: 041
     Dates: start: 20141002, end: 20181101
  2. CALCICHEW [Concomitant]
     Active Substance: CALCIUM CARBONATE
     Indication: HYPONATRAEMIA
  3. FERROUS SULFATE. [Concomitant]
     Active Substance: FERROUS SULFATE
     Indication: ANAEMIA
     Dosage: 400 MILLIGRAM
     Route: 048
     Dates: start: 20160324
  4. DEXAMETHASONE ORAL [Suspect]
     Active Substance: DEXAMETHASONE
     Route: 048
  5. FORCEVAL [Concomitant]
     Active Substance: FOLIC ACID\IRON\MINERALS\VITAMINS
     Indication: PROPHYLAXIS
     Route: 048
     Dates: start: 2017
  6. BENYLIN [Concomitant]
     Active Substance: DIPHENHYDRAMINE HYDROCHLORIDE
     Indication: UPPER RESPIRATORY TRACT INFECTION
     Route: 048
     Dates: start: 20160122
  7. PARACETAMOL [Concomitant]
     Active Substance: ACETAMINOPHEN
     Indication: ARTHRALGIA
     Route: 048
     Dates: start: 201512
  8. COLESEVELAM [Concomitant]
     Active Substance: COLESEVELAM
     Dosage: 3.75 GRAM
     Route: 048
     Dates: start: 20180712
  9. ASPIRIN. [Concomitant]
     Active Substance: ASPIRIN
     Indication: PROPHYLAXIS
     Dosage: 75 MILLIGRAM
     Route: 065
     Dates: start: 20141001
  10. IBUPROFEN. [Concomitant]
     Active Substance: IBUPROFEN
     Indication: BACK PAIN
     Route: 061
     Dates: start: 20170616
  11. ZOMETA [Concomitant]
     Active Substance: ZOLEDRONIC ACID
     Indication: PROPHYLAXIS
     Route: 041
     Dates: start: 20150212
  12. CODEIN [Concomitant]
     Active Substance: CODEINE
     Route: 048
     Dates: start: 20170525
  13. METOCLOPRAMIDE. [Concomitant]
     Active Substance: METOCLOPRAMIDE
     Indication: NAUSEA
     Dosage: 30 MILLIGRAM
     Route: 048
     Dates: start: 20151030
  14. REVLIMID [Suspect]
     Active Substance: LENALIDOMIDE
     Indication: PLASMA CELL MYELOMA
     Dosage: 10 MILLIGRAM
     Route: 048
     Dates: start: 20181002, end: 20181121
  15. PARACETAMOL [Concomitant]
     Active Substance: ACETAMINOPHEN
     Indication: BACK PAIN
  16. LANSOPRAZOLE. [Concomitant]
     Active Substance: LANSOPRAZOLE
     Indication: PROPHYLAXIS
     Dosage: 30 MILLIGRAM
     Route: 048
     Dates: start: 20141001
  17. FLUCONAZOLE. [Concomitant]
     Active Substance: FLUCONAZOLE
     Indication: PROPHYLAXIS
     Dosage: 50 MILLIGRAM
     Route: 048
     Dates: start: 20141001
  18. ZOPICLONE [Concomitant]
     Active Substance: ZOPICLONE
     Indication: INSOMNIA
     Dosage: 3.75 MILLIGRAM
     Route: 048
     Dates: start: 20150129
  19. DEXAMETHASONE ORAL [Suspect]
     Active Substance: DEXAMETHASONE
     Indication: PLASMA CELL MYELOMA
     Dosage: 20 MILLIGRAM
     Route: 048
     Dates: start: 20181002, end: 20181122
  20. COLESEVELAM [Concomitant]
     Active Substance: COLESEVELAM
     Indication: BILE ACID MALABSORPTION
     Route: 048
  21. PARACETAMOL [Concomitant]
     Active Substance: ACETAMINOPHEN
     Indication: MUSCULOSKELETAL PAIN
     Route: 048
     Dates: start: 20170525
  22. CODEIN [Concomitant]
     Active Substance: CODEINE
     Indication: BACK PAIN
     Route: 048
     Dates: start: 201512
  23. CALCICHEW [Concomitant]
     Active Substance: CALCIUM CARBONATE
     Indication: HYPOCALCAEMIA
     Dosage: 1000 MILLIGRAM
     Route: 065
     Dates: start: 20141017
  24. ACICLOVIR [Concomitant]
     Active Substance: ACYCLOVIR
     Indication: PROPHYLAXIS
     Dosage: 1200 MILLIGRAM
     Route: 048
     Dates: start: 20141001

REACTIONS (2)
  - Scapula fracture [Recovering/Resolving]
  - Subarachnoid haemorrhage [Recovering/Resolving]

NARRATIVE: CASE EVENT DATE: 20181113
